FAERS Safety Report 9160247 (Version 1)
Quarter: 2013Q1

REPORT INFORMATION
  Report Type: Spontaneous
  Country: FR (occurrence: FR)
  Receive Date: 20130313
  Receipt Date: 20130313
  Transmission Date: 20140127
  Serious: Yes (Death, Other)
  Sender: FDA-Public Use
  Company Number: FR-ELI_LILLY_AND_COMPANY-FR201303000175

PATIENT
  Age: 56 Year
  Sex: Male

DRUGS (6)
  1. PROZAC [Suspect]
     Dosage: 1 DF, UNKNOWN
     Dates: start: 20121206
  2. TARGOCID [Concomitant]
     Dosage: 1 DF, UNKNOWN
     Dates: start: 20121204, end: 20121218
  3. HEPARIN [Concomitant]
     Dosage: 1 DF, UNKNOWN
     Dates: start: 20121203, end: 20121215
  4. ATARAX [Concomitant]
     Dosage: 1 DF, UNKNOWN
     Dates: start: 201211
  5. COLIMYCINE [Concomitant]
     Dosage: 1 DF, UNKNOWN
     Dates: start: 201211
  6. FOSFOMYCIN [Concomitant]
     Dosage: 1 DF, UNKNOWN
     Dates: start: 201211

REACTIONS (6)
  - Death [Fatal]
  - Renal failure [Not Recovered/Not Resolved]
  - Hepatic failure [Not Recovered/Not Resolved]
  - Thrombocytopenia [Not Recovered/Not Resolved]
  - Gastrointestinal haemorrhage [Recovered/Resolved]
  - Vasoplegia syndrome [Not Recovered/Not Resolved]
